FAERS Safety Report 4749332-8 (Version None)
Quarter: 2005Q3

REPORT INFORMATION
  Report Type: 
  Country: None (occurrence: None)
  Receive Date: 20050812
  Receipt Date: 20050610
  Transmission Date: 20060218
  Serious: Yes (Death)
  Sender: FDA-Public Use
  Company Number: 407554

PATIENT
  Age: 57 Year
  Sex: Female

DRUGS (2)
  1. PEGASYS [Suspect]
     Dosage: OTHER
     Route: 050
     Dates: start: 20041227, end: 20050528
  2. COPEGUS [Suspect]
     Dosage: ORAL
     Route: 048
     Dates: start: 20041227, end: 20050528

REACTIONS (1)
  - DEATH [None]
